FAERS Safety Report 11198938 (Version 1)
Quarter: 2015Q2

REPORT INFORMATION
  Report Type: Spontaneous
  Country: CH (occurrence: CH)
  Receive Date: 20150618
  Receipt Date: 20150618
  Transmission Date: 20150821
  Serious: Yes (Hospitalization)
  Sender: FDA-Public Use
  Company Number: CH-PFIZER INC-2015203493

PATIENT
  Age: 86 Year
  Sex: Female

DRUGS (15)
  1. TORASEMID [Suspect]
     Active Substance: TORSEMIDE
     Indication: HYPERTENSION
     Dosage: 10 MG, 2X/DAY
     Route: 048
     Dates: end: 201505
  2. INDAPAMIDE. [Concomitant]
     Active Substance: INDAPAMIDE
     Dosage: UNK
  3. AGIOLAX [Concomitant]
     Dosage: UNK
  4. DAFALGAN [Concomitant]
     Active Substance: ACETAMINOPHEN
     Dosage: UNK
  5. PRADIF [Concomitant]
     Dosage: UNK
  6. XARELTO [Interacting]
     Active Substance: RIVAROXABAN
     Indication: ATRIAL FIBRILLATION
     Dosage: 20 MG, DAILY
     Route: 048
     Dates: end: 201505
  7. ANTRA /00661201/ [Concomitant]
     Active Substance: OMEPRAZOLE
     Dosage: UNK
  8. VITAMIN D3 [Concomitant]
     Active Substance: CHOLECALCIFEROL
     Dosage: UNK
  9. DUPHALAC [Concomitant]
     Active Substance: LACTULOSE
     Dosage: UNK
  10. FEIGENSIRUP [Concomitant]
     Dosage: UNK
  11. KCL [Concomitant]
     Active Substance: POTASSIUM CHLORIDE
     Dosage: UNK
  12. CORDARONE [Interacting]
     Active Substance: AMIODARONE HYDROCHLORIDE
     Indication: ATRIAL FIBRILLATION
     Dosage: 200 MG, DAILY
     Route: 048
  13. XANAX [Concomitant]
     Active Substance: ALPRAZOLAM
     Dosage: UNK
  14. ZANIDIP [Concomitant]
     Active Substance: LERCANIDIPINE HYDROCHLORIDE
     Dosage: UNK
  15. CONCOR [Concomitant]
     Active Substance: BISOPROLOL FUMARATE
     Dosage: UNK

REACTIONS (12)
  - Melaena [Recovered/Resolved]
  - Glomerular filtration rate decreased [Unknown]
  - Haemorrhagic anaemia [Recovering/Resolving]
  - Hypokalaemia [Recovering/Resolving]
  - Lower gastrointestinal haemorrhage [Recovering/Resolving]
  - Pulmonary congestion [Recovering/Resolving]
  - Syncope [Recovering/Resolving]
  - Cardiac failure [Unknown]
  - Diverticulum intestinal [Unknown]
  - Drug interaction [Recovering/Resolving]
  - Colon adenoma [Unknown]
  - Dizziness [Recovering/Resolving]

NARRATIVE: CASE EVENT DATE: 201504
